FAERS Safety Report 4600219-0 (Version None)
Quarter: 2005Q1

REPORT INFORMATION
  Report Type: 
  Country: None (occurrence: None)
  Receive Date: 20050307
  Receipt Date: 20050228
  Transmission Date: 20050727
  Serious: Yes (Hospitalization)
  Sender: FDA-Public Use
  Company Number: DK-BRISTOL-MYERS SQUIBB COMPANY-12882858

PATIENT
  Age: 73 Year
  Sex: Male
  Weight: 78 kg

DRUGS (1)
  1. COAPROVEL TABS 150MG/12.5MG [Suspect]
     Indication: CARDIAC FAILURE
     Route: 048
     Dates: start: 20041118

REACTIONS (2)
  - EOSINOPHILIA [None]
  - GRANULOMATOUS LIVER DISEASE [None]
